FAERS Safety Report 14325241 (Version 1)
Quarter: 2017Q4

REPORT INFORMATION
  Report Type: Spontaneous
  Country: US (occurrence: US)
  Receive Date: 20171224
  Receipt Date: 20171224
  Transmission Date: 20180321
  Serious: Yes (Life-Threatening, Disabling, Other)
  Sender: FDA-Public Use
  Company Number: None

PATIENT
  Sex: Female
  Weight: 61.65 kg

DRUGS (17)
  1. LIVALO [Concomitant]
     Active Substance: PITAVASTATIN CALCIUM
  2. I-CAP [Concomitant]
  3. ASPIRIN. [Concomitant]
     Active Substance: ASPIRIN
  4. COENZYME Q10 [Concomitant]
     Active Substance: UBIDECARENONE
  5. LORATADINE. [Concomitant]
     Active Substance: LORATADINE
  6. VITAMIN D3 [Concomitant]
     Active Substance: CHOLECALCIFEROL
  7. VIVELLE.DOT PATCH [Concomitant]
  8. VITAMIN B12 [Concomitant]
     Active Substance: CYANOCOBALAMIN
  9. OMEPRAZOLE. [Concomitant]
     Active Substance: OMEPRAZOLE
  10. ESTRACE [Concomitant]
     Active Substance: ESTRADIOL
  11. CARVEDILOL. [Concomitant]
     Active Substance: CARVEDILOL
  12. ALIGN PROBIOTIC [Concomitant]
  13. STIOLTO RESPIMAT [Suspect]
     Active Substance: OLODATEROL HYDROCHLORIDE\TIOTROPIUM BROMIDE MONOHYDRATE
     Indication: CHRONIC OBSTRUCTIVE PULMONARY DISEASE
     Dosage: ORAL; 2 INHALATION(S)?
     Route: 048
     Dates: start: 20160331, end: 20171208
  14. ANORO ELLIPTA [Suspect]
     Active Substance: UMECLIDINIUM BROMIDE\VILANTEROL TRIFENATATE
     Indication: CHRONIC OBSTRUCTIVE PULMONARY DISEASE
     Dosage: ORAL; 1 INHALATION
     Route: 048
     Dates: start: 20160331, end: 20171208
  15. COLESTIPOL [Concomitant]
     Active Substance: COLESTIPOL
  16. LEBALBUTEROL TARTRATE HFA [Concomitant]
  17. FISH OIL [Concomitant]
     Active Substance: FISH OIL

REACTIONS (1)
  - Renal failure [None]

NARRATIVE: CASE EVENT DATE: 20171208
